FAERS Safety Report 22287775 (Version 1)
Quarter: 2023Q2

REPORT INFORMATION
  Report Type: Spontaneous
  Country: NL (occurrence: NL)
  Receive Date: 20230505
  Receipt Date: 20230505
  Transmission Date: 20230721
  Serious: Yes (Hospitalization)
  Sender: FDA-Public Use
  Company Number: None

PATIENT
  Sex: Male
  Weight: 76 kg

DRUGS (1)
  1. DEXAMETHASONE [Suspect]
     Active Substance: DEXAMETHASONE
     Indication: Brain neoplasm
     Dosage: 16 MILLIGRAM DAILY;  DEXAMETHASON TABLET  4MG / BRAND NAME NOT SPECIFIED
     Route: 065
     Dates: start: 20230223

REACTIONS (1)
  - Hyperglycaemia [Recovering/Resolving]
